FAERS Safety Report 15643573 (Version 3)
Quarter: 2019Q1

REPORT INFORMATION
  Report Type: Report from Study
  Country: US (occurrence: US)
  Receive Date: 20181121
  Receipt Date: 20190102
  Transmission Date: 20190417
  Serious: Yes (Death, Other)
  Sender: FDA-Public Use
  Company Number: US-PFIZER INC-2018474470

PATIENT
  Age: 65 Year
  Sex: Female

DRUGS (2)
  1. IBRANCE [Suspect]
     Active Substance: PALBOCICLIB
     Indication: BREAST CANCER FEMALE
     Dosage: 125 MG, CYCLIC (DAILY FOR 21 DAYS ON AND 7 DAYS OFF )
     Route: 048
     Dates: start: 20181018, end: 20181108
  2. FASLODEX [Suspect]
     Active Substance: FULVESTRANT
     Dosage: UNK

REACTIONS (4)
  - Platelet count decreased [Unknown]
  - White blood cell count decreased [Unknown]
  - Bone marrow failure [Unknown]
  - Death [Fatal]

NARRATIVE: CASE EVENT DATE: 2018
